FAERS Safety Report 18533977 (Version 1)
Quarter: 2020Q4

REPORT INFORMATION
  Report Type: Spontaneous
  Country: US (occurrence: US)
  Receive Date: 20201121
  Receipt Date: 20201121
  Transmission Date: 20210114
  Serious: Yes (Hospitalization)
  Sender: FDA-Public Use
  Company Number: None

PATIENT
  Age: 14 Year
  Sex: Female
  Weight: 38 kg

DRUGS (2)
  1. VINCRISTINE SULFATE. [Suspect]
     Active Substance: VINCRISTINE SULFATE
     Dates: end: 20201113
  2. DEXAMETHASONE. [Suspect]
     Active Substance: DEXAMETHASONE
     Dates: end: 20201119

REACTIONS (7)
  - Pyrexia [None]
  - Nausea [None]
  - Hand deformity [None]
  - Faeces soft [None]
  - Chills [None]
  - Abdominal pain [None]
  - Respiratory rate increased [None]

NARRATIVE: CASE EVENT DATE: 20201119
